FAERS Safety Report 14949206 (Version 1)
Quarter: 2018Q2

REPORT INFORMATION
  Report Type: Spontaneous
  Country: US (occurrence: US)
  Receive Date: 20180508
  Receipt Date: 20180508
  Transmission Date: 20180711
  Serious: No
  Sender: FDA-Public Use
  Company Number: None

PATIENT
  Age: 64 Year
  Sex: Female
  Weight: 76.5 kg

DRUGS (2)
  1. MYCOPHENOLATE MOFITEL [Concomitant]
  2. TAMIFLU [Suspect]
     Active Substance: OSELTAMIVIR PHOSPHATE
     Indication: VIRAL INFECTION
     Route: 048
     Dates: start: 20180409, end: 20180414

REACTIONS (4)
  - Dizziness [None]
  - Hallucination, visual [None]
  - Nightmare [None]
  - Balance disorder [None]

NARRATIVE: CASE EVENT DATE: 20180414
